FAERS Safety Report 16346439 (Version 1)
Quarter: 2019Q2

REPORT INFORMATION
  Report Type: Spontaneous
  Country: US (occurrence: US)
  Receive Date: 20190523
  Receipt Date: 20190523
  Transmission Date: 20190711
  Serious: Yes (Life-Threatening, Hospitalization, Other)
  Sender: FDA-Public Use
  Company Number: US-INVENTIA-000286

PATIENT
  Age: 17 Year
  Sex: Male

DRUGS (1)
  1. METFORMIN [Suspect]
     Active Substance: METFORMIN HYDROCHLORIDE
     Dosage: 20 TABLETS OF METFORMIN (TOTAL DOSE OF 10,000 MG; 0.173 G/KG BODY WEIGHT)

REACTIONS (9)
  - Acute kidney injury [Recovered/Resolved]
  - Toxicity to various agents [Unknown]
  - Suicide attempt [Unknown]
  - Metabolic acidosis [Recovered/Resolved]
  - Hypoglycaemia [Recovered/Resolved]
  - Lactic acidosis [Recovered/Resolved]
  - Somnolence [Recovered/Resolved]
  - Heart injury [Recovered/Resolved]
  - Intentional overdose [Unknown]
